FAERS Safety Report 25548231 (Version 2)
Quarter: 2025Q3

REPORT INFORMATION
  Report Type: Spontaneous
  Country: GB (occurrence: GB)
  Receive Date: 20250714
  Receipt Date: 20250905
  Transmission Date: 20251020
  Serious: Yes (Other)
  Sender: MYLAN
  Company Number: GB-MYLANLABS-2025M1056914

PATIENT
  Age: 34 Year
  Sex: Male

DRUGS (23)
  1. BUPRENORPHINE [Suspect]
     Active Substance: BUPRENORPHINE
     Indication: Drug dependence
     Dosage: 2 MILLIGRAM, QD
     Dates: start: 202409
  2. BUPRENORPHINE [Suspect]
     Active Substance: BUPRENORPHINE
     Dosage: 4 MILLIGRAM, QD
  3. BUPRENORPHINE [Suspect]
     Active Substance: BUPRENORPHINE
  4. BUPRENORPHINE [Suspect]
     Active Substance: BUPRENORPHINE
  5. BUPRENORPHINE [Suspect]
     Active Substance: BUPRENORPHINE
  6. BUPRENORPHINE [Suspect]
     Active Substance: BUPRENORPHINE
  7. BUPRENORPHINE [Suspect]
     Active Substance: BUPRENORPHINE
  8. BUPRENORPHINE [Suspect]
     Active Substance: BUPRENORPHINE
     Dosage: 2.6 MILLIGRAM, QD
  9. HERBALS\MITRAGYNINE [Concomitant]
     Active Substance: HERBALS\MITRAGYNINE
     Indication: Anxiety
  10. HERBALS\MITRAGYNINE [Concomitant]
     Active Substance: HERBALS\MITRAGYNINE
     Indication: Affective disorder
     Dosage: 20 GRAM, QD
  11. HERBALS\MITRAGYNINE [Concomitant]
     Active Substance: HERBALS\MITRAGYNINE
     Indication: Obsessive-compulsive disorder
     Dosage: 40 GRAM, QD
  12. HERBALS\MITRAGYNINE [Concomitant]
     Active Substance: HERBALS\MITRAGYNINE
     Dosage: UNK, QD (SEVERAL MUGS OF MITRAGYNA-SPECIOSA)
  13. HERBALS\MITRAGYNINE [Concomitant]
     Active Substance: HERBALS\MITRAGYNINE
     Dosage: 17.5 GRAM, QW
  14. HERBALS\MITRAGYNINE [Concomitant]
     Active Substance: HERBALS\MITRAGYNINE
     Dosage: 4 GRAM, QW
  15. HERBALS\MITRAGYNINE [Concomitant]
     Active Substance: HERBALS\MITRAGYNINE
     Dosage: 5 GRAM, QD
  16. HERBALS\MITRAGYNINE [Concomitant]
     Active Substance: HERBALS\MITRAGYNINE
     Dosage: 0.3 GRAM, QW
  17. HERBALS\MITRAGYNINE [Concomitant]
     Active Substance: HERBALS\MITRAGYNINE
     Dosage: 3.3 GRAM, QD
  18. HERBALS\MITRAGYNINE [Concomitant]
     Active Substance: HERBALS\MITRAGYNINE
     Dosage: 0.2 GRAM, QW
  19. HERBALS\MITRAGYNINE [Concomitant]
     Active Substance: HERBALS\MITRAGYNINE
     Dosage: 3 GRAM, QD
  20. HERBALS\MITRAGYNINE [Concomitant]
     Active Substance: HERBALS\MITRAGYNINE
     Dosage: 1.15 GRAM, QD
  21. HERBALS\MITRAGYNINE [Concomitant]
     Active Substance: HERBALS\MITRAGYNINE
     Dosage: 0.45 GRAM, QD
  22. HERBALS\MITRAGYNINE [Concomitant]
     Active Substance: HERBALS\MITRAGYNINE
  23. HERBALS\MITRAGYNINE [Concomitant]
     Active Substance: HERBALS\MITRAGYNINE
     Dosage: 0.1 GRAM, QW

REACTIONS (2)
  - Rebound effect [Unknown]
  - Suicidal ideation [Unknown]
